FAERS Safety Report 15121354 (Version 1)
Quarter: 2018Q3

REPORT INFORMATION
  Report Type: Spontaneous
  Country: US (occurrence: US)
  Receive Date: 20180709
  Receipt Date: 20180709
  Transmission Date: 20181010
  Serious: No
  Sender: FDA-Public Use
  Company Number: US-AKRON, INC.-2051574

PATIENT
  Age: 76 Year
  Sex: Male

DRUGS (1)
  1. CLOBETASOL PROPIONATE CREAM, USP [Suspect]
     Active Substance: CLOBETASOL PROPIONATE
     Route: 061
     Dates: end: 20180317

REACTIONS (5)
  - Dry skin [Unknown]
  - Skin burning sensation [Unknown]
  - Pain [Unknown]
  - Erythema [Unknown]
  - Hyperhidrosis [Unknown]
